FAERS Safety Report 4781999-0 (Version None)
Quarter: 2005Q3

REPORT INFORMATION
  Report Type: 
  Country: None (occurrence: None)
  Receive Date: 20050928
  Receipt Date: 20050623
  Transmission Date: 20060218
  Serious: Yes (Hospitalization, Disabling)
  Sender: FDA-Public Use
  Company Number: US-MERCK-0506USA03568

PATIENT
  Age: 74 Year
  Sex: Female
  Weight: 95 kg

DRUGS (8)
  1. VIOXX [Suspect]
     Indication: OSTEOARTHRITIS
     Route: 048
     Dates: start: 20010810, end: 20040316
  2. HYDROCHLOROTHIAZIDE AND TRIAMTERENE [Concomitant]
     Indication: OEDEMA
     Route: 065
     Dates: start: 20000508
  3. CAPTOPRIL MSD [Concomitant]
     Indication: HYPERTENSION
     Route: 065
     Dates: start: 20000508
  4. SYNTHROID [Concomitant]
     Indication: THYROID DISORDER
     Route: 065
     Dates: start: 20010516
  5. POTASSIUM CHLORIDE [Concomitant]
     Indication: PROPHYLAXIS
     Route: 065
     Dates: start: 20020904
  6. ASPIRIN [Concomitant]
     Indication: BLOOD PRESSURE INCREASED
     Route: 065
     Dates: start: 20000101
  7. ASPIRIN [Concomitant]
     Indication: CEREBROVASCULAR ACCIDENT PROPHYLAXIS
     Route: 065
     Dates: start: 20000101
  8. LOPRESSOR [Concomitant]
     Route: 065

REACTIONS (15)
  - AORTIC VALVE STENOSIS [None]
  - CARDIAC FAILURE CONGESTIVE [None]
  - CEREBROVASCULAR ACCIDENT [None]
  - CHEST DISCOMFORT [None]
  - DEPRESSION [None]
  - GASTROOESOPHAGEAL REFLUX DISEASE [None]
  - GOUT [None]
  - HEART RATE DECREASED [None]
  - HYPERTENSION [None]
  - IMPETIGO [None]
  - OEDEMA [None]
  - SYNCOPE [None]
  - TRIGGER FINGER [None]
  - UPPER RESPIRATORY TRACT INFECTION [None]
  - URETHRITIS [None]
